FAERS Safety Report 5247040-0 (Version None)
Quarter: 2007Q1

REPORT INFORMATION
  Report Type: 
  Country: None (occurrence: None)
  Receive Date: 20070226
  Receipt Date: 20070214
  Transmission Date: 20070707
  Serious: Yes (Other)
  Sender: FDA-Public Use
  Company Number: US-PFIZER INC-2005167573

PATIENT
  Sex: Male
  Weight: 72.6 kg

DRUGS (8)
  1. VIAGRA [Suspect]
     Indication: ERECTILE DYSFUNCTION
     Route: 048
     Dates: start: 20030101, end: 20061001
  2. ACCUPRIL [Suspect]
     Indication: HYPERTENSION
     Route: 065
  3. CIALIS [Suspect]
     Indication: ERECTILE DYSFUNCTION
  4. TRIAMTERENE AND HYDROCHLOROTHIAZIDE [Concomitant]
     Route: 065
  5. LUMIGAN [Concomitant]
     Route: 065
  6. ACETYLSALICYLIC ACID SRT [Concomitant]
     Route: 065
  7. VITAMIN CAP [Concomitant]
     Route: 065
  8. FISH OIL [Concomitant]
     Route: 065

REACTIONS (26)
  - ABDOMINAL PAIN UPPER [None]
  - ADENOMA BENIGN [None]
  - ARTHRITIS [None]
  - CERUMEN IMPACTION [None]
  - DIZZINESS [None]
  - DRUG INEFFECTIVE [None]
  - DRUG INTOLERANCE [None]
  - DYSPNOEA [None]
  - ERECTILE DYSFUNCTION [None]
  - FATIGUE [None]
  - FLUSHING [None]
  - GASTROOESOPHAGEAL REFLUX DISEASE [None]
  - HIATUS HERNIA [None]
  - HYPERTENSION [None]
  - HYPOTENSION [None]
  - MUSCULOSKELETAL PAIN [None]
  - PAIN [None]
  - PARAESTHESIA [None]
  - PROSTATE CANCER [None]
  - PROSTATITIS [None]
  - SINUSITIS [None]
  - SKIN LESION [None]
  - STOMACH DISCOMFORT [None]
  - TINNITUS [None]
  - UPPER RESPIRATORY TRACT INFECTION [None]
  - VISION BLURRED [None]
